FAERS Safety Report 4961126-7 (Version None)
Quarter: 2006Q1

REPORT INFORMATION
  Report Type: 
  Country: None (occurrence: None)
  Receive Date: 20060328
  Receipt Date: 20060315
  Transmission Date: 20060701
  Serious: Yes (Hospitalization, Other)
  Sender: FDA-Public Use
  Company Number: 2006015244

PATIENT
  Age: 44 Year
  Sex: Female
  Weight: 65.318 kg

DRUGS (4)
  1. ZITHROMAX [Suspect]
     Indication: PHARYNGOLARYNGEAL PAIN
     Dosage: SEE IMAGE
     Route: 048
     Dates: start: 20060110, end: 20060113
  2. ZITHROMAX [Suspect]
     Indication: TRACHEITIS
     Dosage: SEE IMAGE
     Route: 048
     Dates: start: 20060110, end: 20060113
  3. ADVIL [Concomitant]
  4. FIORINAL [Concomitant]

REACTIONS (7)
  - ABDOMINAL PAIN [None]
  - ANAPHYLACTIC REACTION [None]
  - ARTHRALGIA [None]
  - HYPERSENSITIVITY [None]
  - OEDEMA PERIPHERAL [None]
  - RAYNAUD'S PHENOMENON [None]
  - SWELLING [None]
